FAERS Safety Report 9392915 (Version 2)
Quarter: 2013Q3

REPORT INFORMATION
  Report Type: Spontaneous
  Country: US (occurrence: US)
  Receive Date: 20130710
  Receipt Date: 20130807
  Transmission Date: 20140515
  Serious: Yes (Other)
  Sender: FDA-Public Use
  Company Number: US-PFIZER INC-2013201982

PATIENT
  Age: 46 Year
  Sex: Male
  Weight: 84.81 kg

DRUGS (5)
  1. DAYPRO [Suspect]
     Indication: INFLAMMATION
     Dosage: 600 MG, 1X/DAY
  2. DAYPRO [Suspect]
     Indication: INTERVERTEBRAL DISC PROTRUSION
  3. OXAPROZIN [Suspect]
     Indication: INFLAMMATION
     Dosage: UNK
     Dates: start: 1994
  4. OXAPROZIN [Suspect]
     Indication: INTERVERTEBRAL DISC PROTRUSION
  5. HYDROCODONE [Suspect]
     Indication: BACK PAIN
     Dosage: 500 MG, 2X/DAY

REACTIONS (7)
  - Arthropathy [Unknown]
  - Back disorder [Unknown]
  - Drug ineffective [Unknown]
  - Drug dose omission [Unknown]
  - Muscle tightness [Unknown]
  - Sciatica [Unknown]
  - Back pain [Unknown]
